FAERS Safety Report 8231616-2 (Version None)
Quarter: 2012Q1

REPORT INFORMATION
  Report Type: 
  Country: None (occurrence: None)
  Receive Date: 20120323
  Receipt Date: 20120311
  Transmission Date: 20120608
  Serious: Yes (Hospitalization)
  Sender: FDA-Public Use
  Company Number: JP-ELI_LILLY_AND_COMPANY-JP201201004936

PATIENT
  Age: 79 Year
  Sex: Female

DRUGS (1)
  1. FORTEO [Suspect]
     Dosage: UNK
     Route: 058
     Dates: start: 20120106

REACTIONS (4)
  - CEREBRAL HAEMORRHAGE [None]
  - INJECTION SITE ERYTHEMA [None]
  - INCORRECT STORAGE OF DRUG [None]
  - INJECTION SITE HAEMATOMA [None]
